FAERS Safety Report 16233736 (Version 1)
Quarter: 2019Q2

REPORT INFORMATION
  Report Type: Spontaneous
  Country: US (occurrence: US)
  Receive Date: 20190424
  Receipt Date: 20190424
  Transmission Date: 20190711
  Serious: No
  Sender: FDA-Public Use
  Company Number: US-TEVA-2019-US-1042418

PATIENT
  Sex: Female
  Weight: 113.85 kg

DRUGS (2)
  1. DESVENLAFAXINE SODIUM-WESTWARD [Suspect]
     Active Substance: DESVENLAFAXINE SUCCINATE
     Route: 065
  2. DESVENLAFAXINE SODIUM-ACTAVIS [Suspect]
     Active Substance: DESVENLAFAXINE SUCCINATE
     Route: 065

REACTIONS (3)
  - Adverse drug reaction [Unknown]
  - Crying [Unknown]
  - Drug ineffective [Unknown]
